FAERS Safety Report 11349848 (Version 2)
Quarter: 2015Q4

REPORT INFORMATION
  Report Type: Report from Study
  Country: CA (occurrence: CA)
  Receive Date: 20150807
  Receipt Date: 20151028
  Transmission Date: 20160304
  Serious: Yes (Other)
  Sender: FDA-Public Use
  Company Number: CA-AMGEN-CANSP2012078612

PATIENT
  Age: 67 Year
  Sex: Female
  Weight: 45.45 kg

DRUGS (3)
  1. PROLIA [Suspect]
     Active Substance: DENOSUMAB
     Indication: OSTEOPOROSIS POSTMENOPAUSAL
     Dosage: 60 MG
     Route: 058
     Dates: start: 20121121
  2. CALCIUM VITAMIN D [Concomitant]
     Active Substance: CALCIUM\VITAMIN D
  3. VITAMIN B COMPLEX WITH C [Concomitant]
     Active Substance: ASCORBIC ACID\CALCIUM PANTOTHENATE\CYANOCOBALAMIN\NIACINAMIDE\PYRIDOXINE HYDROCHLORIDE\RIBOFLAVIN\THIAMINE MONONITRATE

REACTIONS (14)
  - Pain [Unknown]
  - Dyspepsia [Recovered/Resolved]
  - Osteoporosis [Unknown]
  - Wrist fracture [Unknown]
  - Lipoma of breast [Unknown]
  - Bone pain [Unknown]
  - Drug intolerance [Unknown]
  - Pyrexia [Unknown]
  - Nausea [Recovered/Resolved]
  - Eczema [Unknown]
  - Surgery [Unknown]
  - Weight decreased [Unknown]
  - Shoulder operation [Unknown]
  - Abdominal discomfort [Not Recovered/Not Resolved]

NARRATIVE: CASE EVENT DATE: 2012
